FAERS Safety Report 19224808 (Version 2)
Quarter: 2021Q3

REPORT INFORMATION
  Report Type: Spontaneous
  Country: JP (occurrence: JP)
  Receive Date: 20210505
  Receipt Date: 20210714
  Transmission Date: 20211014
  Serious: Yes (Hospitalization, Other)
  Sender: FDA-Public Use
  Company Number: NVSJ2021JP006420

PATIENT
  Age: 52 Year
  Sex: Male

DRUGS (1)
  1. NEORAL [Suspect]
     Active Substance: CYCLOSPORINE
     Indication: CYTOKINE RELEASE SYNDROME
     Dosage: 150 MG
     Route: 048

REACTIONS (2)
  - Cytokine storm [Unknown]
  - Dysphagia [Unknown]
